FAERS Safety Report 9695673 (Version 1)
Quarter: 2013Q4

REPORT INFORMATION
  Report Type: Spontaneous
  Country: US (occurrence: None)
  Receive Date: 20131118
  Receipt Date: 20131118
  Transmission Date: 20140711
  Serious: Yes (Hospitalization, Other)
  Sender: FDA-Public Use
  Company Number: None

PATIENT
  Age: 39 Year
  Sex: Male
  Weight: 92.99 kg

DRUGS (1)
  1. REGLAN [Suspect]
     Indication: GASTRIC DISORDER
     Dosage: 2 PILLS ?TWICE DAILY?TAKEN MY MOUTH
     Route: 048
     Dates: start: 20130627, end: 20130705

REACTIONS (10)
  - Dizziness [None]
  - Nervousness [None]
  - Palpitations [None]
  - Mental impairment [None]
  - Depression [None]
  - Panic attack [None]
  - Tremor [None]
  - Hypoaesthesia [None]
  - Suicidal ideation [None]
  - Mood altered [None]
